FAERS Safety Report 9844842 (Version 2)
Quarter: 2014Q1

REPORT INFORMATION
  Report Type: Spontaneous
  Country: US (occurrence: US)
  Receive Date: 20140127
  Receipt Date: 20140127
  Transmission Date: 20141002
  Serious: Yes (Disabling, Other)
  Sender: FDA-Public Use
  Company Number: US-GE HEALTHCARE MEDICAL DIAGNOSTICS-OSCN-PR-0908S-0390

PATIENT
  Age: 58 Year
  Sex: Male

DRUGS (7)
  1. OMNISCAN [Suspect]
     Indication: NEPHROPATHY
     Route: 042
     Dates: start: 20050318, end: 20050318
  2. OMNISCAN [Suspect]
     Indication: MENTAL STATUS CHANGES
     Route: 042
     Dates: start: 20050319, end: 20050319
  3. OMNISCAN [Suspect]
     Indication: LOCAL SWELLING
     Route: 042
     Dates: start: 20050329, end: 20050329
  4. MAGNEVIST [Suspect]
  5. OPTIMARK [Suspect]
  6. MULTIHANCE [Suspect]
  7. PROHANCE [Suspect]

REACTIONS (1)
  - Nephrogenic systemic fibrosis [Not Recovered/Not Resolved]
